FAERS Safety Report 14151969 (Version 1)
Quarter: 2017Q4

REPORT INFORMATION
  Report Type: Spontaneous
  Country: US (occurrence: US)
  Receive Date: 20171102
  Receipt Date: 20171102
  Transmission Date: 20180321
  Serious: Yes (Other)
  Sender: FDA-Public Use
  Company Number: US-SUN PHARMACEUTICAL INDUSTRIES LTD-2017US-153722

PATIENT
  Age: 14 Year
  Sex: Female

DRUGS (1)
  1. ABSORICA [Suspect]
     Active Substance: ISOTRETINOIN
     Indication: ACNE
     Dosage: UNK UNK, QD
     Route: 065
     Dates: start: 20160131, end: 20171001

REACTIONS (5)
  - Inappropriate schedule of drug administration [Recovered/Resolved]
  - Platelet count increased [Unknown]
  - Anaemia [Unknown]
  - Systemic lupus erythematosus rash [Not Recovered/Not Resolved]
  - Antinuclear antibody positive [Unknown]

NARRATIVE: CASE EVENT DATE: 20160131
